FAERS Safety Report 9889632 (Version 1)
Quarter: 2014Q1

REPORT INFORMATION
  Report Type: Spontaneous
  Country: IT (occurrence: IT)
  Receive Date: 20140211
  Receipt Date: 20140211
  Transmission Date: 20141002
  Serious: Yes (Hospitalization, Other)
  Sender: FDA-Public Use
  Company Number: IT-UCBSA-112028

PATIENT
  Age: 74 Year
  Sex: Female

DRUGS (10)
  1. MONOKET [Suspect]
     Indication: MYOCARDIAL ISCHAEMIA
     Route: 048
     Dates: start: 20131215, end: 20131215
  2. MONOKET [Suspect]
     Indication: MYOCARDIAL ISCHAEMIA
     Dosage: STRENGTH: 20 MG
     Route: 048
  3. DEBRIDAT [Suspect]
     Dosage: STRENGTH: 150 MG
     Route: 048
     Dates: start: 20131215, end: 20131215
  4. LASIX [Concomitant]
  5. HUMALOG [Concomitant]
  6. PLAVIX [Concomitant]
  7. TRIATEC [Concomitant]
  8. LANTUS [Concomitant]
  9. SERETIDE [Concomitant]
  10. SPIRIVA [Concomitant]

REACTIONS (3)
  - Drug abuse [Unknown]
  - Hypotension [Recovering/Resolving]
  - Somnolence [Recovering/Resolving]
